FAERS Safety Report 18735648 (Version 2)
Quarter: 2021Q1

REPORT INFORMATION
  Report Type: Spontaneous
  Country: IT (occurrence: IT)
  Receive Date: 20210113
  Receipt Date: 20210328
  Transmission Date: 20210419
  Serious: Yes (Other)
  Sender: FDA-Public Use
  Company Number: IT-BRISTOL-MYERS SQUIBB COMPANY-BMS-2021-001225

PATIENT
  Age: 66 Year
  Sex: Male
  Weight: 95 kg

DRUGS (7)
  1. PANTOPRAZOLE [Concomitant]
     Active Substance: PANTOPRAZOLE
     Indication: PRODUCT USED FOR UNKNOWN INDICATION
     Route: 065
  2. INSULIN [Concomitant]
     Active Substance: INSULIN NOS
     Indication: PRODUCT USED FOR UNKNOWN INDICATION
     Dosage: 31 MILLIGRAM (PER DAY)
     Route: 065
  3. PALEXIA [Interacting]
     Active Substance: TAPENTADOL HYDROCHLORIDE
     Indication: PRODUCT USED FOR UNKNOWN INDICATION
     Dosage: 100 MILLIGRAM
     Route: 065
  4. COUMADIN [Suspect]
     Active Substance: WARFARIN SODIUM
     Indication: ANTICOAGULANT THERAPY
     Dosage: 3/4 OR 1 TABLET DEPENDS OF INR, ONCE A DAY
     Route: 048
     Dates: start: 2020
  5. NEURONTIN [Suspect]
     Active Substance: GABAPENTIN
     Indication: PRURITUS
     Dosage: SUSPENDED ABOUT 20 DAYS AGO
     Route: 065
  6. K [POTASSIUM] [Concomitant]
     Active Substance: POTASSIUM
     Indication: PRODUCT USED FOR UNKNOWN INDICATION
     Dosage: 1 TAB, QD
     Route: 065
  7. CORTISONE [Concomitant]
     Active Substance: CORTISONE
     Indication: PRODUCT USED FOR UNKNOWN INDICATION
     Route: 065

REACTIONS (11)
  - Diabetes mellitus [Unknown]
  - Peripheral coldness [Unknown]
  - Feeling hot [Unknown]
  - Pallor [Unknown]
  - Drug interaction [Unknown]
  - Erectile dysfunction [Unknown]
  - Hyperhidrosis [Unknown]
  - Sexual dysfunction [Unknown]
  - Escherichia urinary tract infection [Unknown]
  - Blood viscosity increased [Unknown]
  - International normalised ratio decreased [Not Recovered/Not Resolved]
